FAERS Safety Report 11839502 (Version 4)
Quarter: 2016Q1

REPORT INFORMATION
  Report Type: Report from Study
  Country: CA (occurrence: CA)
  Receive Date: 20151216
  Receipt Date: 20160209
  Transmission Date: 20160525
  Serious: Yes (Hospitalization, Other)
  Sender: FDA-Public Use
  Company Number: PHHY2015CA159118

PATIENT
  Age: 39 Year
  Sex: Female

DRUGS (6)
  1. VITAMIN D [Concomitant]
     Active Substance: CHOLECALCIFEROL
     Indication: PRODUCT USED FOR UNKNOWN INDICATION
     Route: 065
  2. AFINITOR [Suspect]
     Active Substance: EVEROLIMUS
     Dosage: 5 MG, QD
     Route: 048
     Dates: end: 20160130
  3. CALCIUM [Concomitant]
     Active Substance: CALCIUM
     Indication: PRODUCT USED FOR UNKNOWN INDICATION
     Route: 065
  4. EXEMESTANE. [Concomitant]
     Active Substance: EXEMESTANE
     Indication: PRODUCT USED FOR UNKNOWN INDICATION
     Route: 065
  5. AFINITOR [Suspect]
     Active Substance: EVEROLIMUS
     Indication: BREAST CANCER
     Dosage: 10 MG, QD
     Route: 048
     Dates: start: 20151125
  6. XGEVA [Concomitant]
     Active Substance: DENOSUMAB
     Indication: PRODUCT USED FOR UNKNOWN INDICATION
     Dosage: UNK UNK, QMO
     Route: 065

REACTIONS (25)
  - Asthenia [Unknown]
  - Oral mucosal eruption [Unknown]
  - Burning sensation [Unknown]
  - Cough [Recovered/Resolved]
  - Fatigue [Unknown]
  - Malaise [Unknown]
  - Palpitations [Unknown]
  - Depressed mood [Unknown]
  - Glossodynia [Unknown]
  - Stomatitis [Unknown]
  - Headache [Unknown]
  - Viral infection [Unknown]
  - Dyspnoea [Unknown]
  - Dry throat [Unknown]
  - Cheilitis [Unknown]
  - Crying [Unknown]
  - Oropharyngeal pain [Unknown]
  - Feeding disorder [Unknown]
  - Vomiting [Unknown]
  - Rash [Unknown]
  - Weight decreased [Unknown]
  - Acne [Unknown]
  - Heart rate increased [Unknown]
  - Skin bacterial infection [Unknown]
  - Pain [Unknown]

NARRATIVE: CASE EVENT DATE: 20151130
